FAERS Safety Report 11147089 (Version 1)
Quarter: 2015Q2

REPORT INFORMATION
  Report Type: Spontaneous
  Country: FR (occurrence: FR)
  Receive Date: 20150528
  Receipt Date: 20150528
  Transmission Date: 20150821
  Serious: Yes (Other)
  Sender: FDA-Public Use
  Company Number: FR-MYLANLABS-2015M1017508

PATIENT

DRUGS (9)
  1. ROPIVACAINE [Suspect]
     Active Substance: ROPIVACAINE
     Indication: PAIN
     Dosage: 20ML SOL OF 1MG/ML ROPIVACAINE AND 0.25MICROG/ML SUFENTANIL AND 8ML BOLUS OF SAME SOL. 20MIN LATER
     Route: 008
  2. LIDOCAINE. [Suspect]
     Active Substance: LIDOCAINE
     Dosage: 15 ML OF 20 MG/ML LIDOCAINE WITH EPINEPHRINE
     Route: 008
  3. MORPHINE [Suspect]
     Active Substance: MORPHINE
     Dosage: 2 MG
     Route: 008
  4. NEFOPAM [Concomitant]
     Active Substance: NEFOPAM
     Indication: ANALGESIC THERAPY
     Dosage: 40 MG X 4/24 HOURS
     Route: 048
  5. ENOXAPARIN SODIUM. [Concomitant]
     Active Substance: ENOXAPARIN SODIUM
     Indication: THROMBOSIS PROPHYLAXIS
     Dosage: 40 MG/24 HOURS
     Route: 058
  6. PARACETAMOL [Suspect]
     Active Substance: ACETAMINOPHEN
     Dosage: 1 MG X 4/24 HOURS
     Route: 048
  7. KETOPROFEN. [Suspect]
     Active Substance: KETOPROFEN
     Dosage: 50 MG X 4/24 HOURS
     Route: 048
  8. SUFENTANIL [Suspect]
     Active Substance: SUFENTANIL
     Dosage: 20ML SOL OF 1MG/ML ROPIVACAINE AND 0.25MICROG/ML SUFENTANIL AND 8ML BOLUS OF SAME SOL. 20MIN LATER
     Route: 008
  9. EPINEPHRINE. [Concomitant]
     Active Substance: EPINEPHRINE
     Dosage: 15 ML OF 20 MG/ML LIDOCAINE WITH EPINEPHRINE
     Route: 008

REACTIONS (3)
  - Epidural haemorrhage [Recovering/Resolving]
  - Peripheral nerve injury [Recovered/Resolved]
  - Maternal exposure during delivery [Recovering/Resolving]
